FAERS Safety Report 15637351 (Version 1)
Quarter: 2018Q4

REPORT INFORMATION
  Report Type: Spontaneous
  Country: US (occurrence: US)
  Receive Date: 20181120
  Receipt Date: 20181120
  Transmission Date: 20190205
  Serious: No
  Sender: FDA-Public Use
  Company Number: US-JNJFOC-20180507948

PATIENT
  Sex: Male

DRUGS (5)
  1. IMBRUVICA [Suspect]
     Active Substance: IBRUTINIB
     Indication: CHRONIC LYMPHOCYTIC LEUKAEMIA
     Route: 048
     Dates: start: 20171217, end: 20180406
  2. ATORVASTATIN [Concomitant]
     Active Substance: ATORVASTATIN
  3. FLUTICASONE. [Concomitant]
     Active Substance: FLUTICASONE
  4. LEVOTHYROXINE W/LIOTHYRONINE [Concomitant]
  5. IMITREX [Concomitant]
     Active Substance: SUMATRIPTAN SUCCINATE

REACTIONS (1)
  - Cardiac disorder [Unknown]
